FAERS Safety Report 21383441 (Version 1)
Quarter: 2022Q3

REPORT INFORMATION
  Report Type: Report from Study
  Country: JP (occurrence: JP)
  Receive Date: 20220927
  Receipt Date: 20220927
  Transmission Date: 20221027
  Serious: Yes (Other)
  Sender: FDA-Public Use
  Company Number: JP-TAKEDA-2022TUS067808

PATIENT
  Age: 32 Year
  Sex: Male

DRUGS (8)
  1. GUANFACINE HYDROCHLORIDE [Suspect]
     Active Substance: GUANFACINE HYDROCHLORIDE
     Indication: Attention deficit hyperactivity disorder
     Dosage: 1 MILLIGRAM, QD
     Route: 048
     Dates: start: 20210807, end: 20210827
  2. GUANFACINE HYDROCHLORIDE [Suspect]
     Active Substance: GUANFACINE HYDROCHLORIDE
     Dosage: 2 MILLIGRAM, QD
     Route: 048
     Dates: start: 20210828, end: 20210917
  3. GUANFACINE HYDROCHLORIDE [Suspect]
     Active Substance: GUANFACINE HYDROCHLORIDE
     Dosage: 3 MILLIGRAM, QD
     Route: 048
     Dates: start: 20210918, end: 20220107
  4. GUANFACINE HYDROCHLORIDE [Suspect]
     Active Substance: GUANFACINE HYDROCHLORIDE
     Dosage: 4 MILLIGRAM, QD
     Route: 048
     Dates: start: 20220108, end: 20220128
  5. GUANFACINE HYDROCHLORIDE [Suspect]
     Active Substance: GUANFACINE HYDROCHLORIDE
     Dosage: 5 MILLIGRAM, QD
     Route: 048
     Dates: start: 20220129, end: 20220518
  6. LUNESTA [Concomitant]
     Active Substance: ESZOPICLONE
     Dosage: UNK
     Route: 065
     Dates: end: 20220518
  7. CONCERTA [Concomitant]
     Active Substance: METHYLPHENIDATE HYDROCHLORIDE
     Indication: Attention deficit hyperactivity disorder
     Dosage: UNK
     Route: 065
     Dates: end: 20220518
  8. ATOMOXETINE HYDROCHLORIDE [Concomitant]
     Active Substance: ATOMOXETINE HYDROCHLORIDE
     Dosage: UNK
     Route: 065
     Dates: end: 20220518

REACTIONS (1)
  - Carotid artery dissection [Recovered/Resolved]

NARRATIVE: CASE EVENT DATE: 20220518
